FAERS Safety Report 6121762-1 (Version None)
Quarter: 2009Q1

REPORT INFORMATION
  Report Type: 
  Country: None (occurrence: None)
  Receive Date: 20090317
  Receipt Date: 20090309
  Transmission Date: 20090719
  Serious: Yes (Hospitalization)
  Sender: FDA-Public Use
  Company Number: NO-B.I. PHARMACEUTICALS,INC./RIDGEFIELD-2009-SW-00069NO

PATIENT
  Sex: Female

DRUGS (4)
  1. PERSANTINE [Suspect]
     Indication: TRANSIENT ISCHAEMIC ATTACK
     Dosage: 200MG
     Route: 048
     Dates: start: 20060630
  2. ALBYL-E [Suspect]
     Indication: TRANSIENT ISCHAEMIC ATTACK
     Dosage: 160MG
     Route: 048
     Dates: start: 20060630, end: 20090101
  3. LEVOTHYROXINE SODIUM [Concomitant]
     Indication: HYPOTHYROIDISM
     Dosage: 100MCG
     Route: 048
  4. ATACAND [Concomitant]
     Dosage: 8MG
     Route: 048

REACTIONS (8)
  - ANAEMIA [None]
  - DIVERTICULUM INTESTINAL [None]
  - DUODENAL POLYP [None]
  - EPISTAXIS [None]
  - GASTRITIS [None]
  - HAEMATOCHEZIA [None]
  - IRRITABLE BOWEL SYNDROME [None]
  - LISTLESS [None]
